FAERS Safety Report 11732625 (Version 1)
Quarter: 2015Q4

REPORT INFORMATION
  Report Type: Spontaneous
  Country: US (occurrence: US)
  Receive Date: 20151110
  Receipt Date: 20151110
  Transmission Date: 20160304
  Serious: No
  Sender: FDA-Public Use
  Company Number: US-ELI_LILLY_AND_COMPANY-US201201001662

PATIENT
  Age: 86 Year
  Sex: Female

DRUGS (10)
  1. FORTEO [Suspect]
     Active Substance: TERIPARATIDE
     Indication: OSTEOPOROSIS
     Dosage: 20 UG, QD
     Route: 065
     Dates: start: 2011, end: 2011
  2. FORTEO [Suspect]
     Active Substance: TERIPARATIDE
     Dosage: 20 UG, QD
  3. FORTEO [Suspect]
     Active Substance: TERIPARATIDE
     Dosage: 20 UG, QD
     Route: 065
  4. FORTEO [Suspect]
     Active Substance: TERIPARATIDE
     Dosage: 20 UG, QD
     Route: 065
  5. FORTEO [Suspect]
     Active Substance: TERIPARATIDE
     Dosage: 20 UG, QD
     Route: 065
  6. FORTEO [Suspect]
     Active Substance: TERIPARATIDE
     Dosage: 20 UG, QD
     Route: 065
  7. FORTEO [Suspect]
     Active Substance: TERIPARATIDE
     Dosage: 20 UG, QD
     Route: 065
  8. FORTEO [Suspect]
     Active Substance: TERIPARATIDE
     Dosage: 20 UG, QD
     Route: 065
  9. FORTEO [Suspect]
     Active Substance: TERIPARATIDE
     Dosage: 20 UG, QD
     Route: 065
  10. VITAMINS [Concomitant]
     Active Substance: VITAMINS

REACTIONS (30)
  - Palpitations [Unknown]
  - Musculoskeletal discomfort [Unknown]
  - Posture abnormal [Unknown]
  - Mental disorder [Not Recovered/Not Resolved]
  - Bone pain [Unknown]
  - Limb discomfort [Unknown]
  - Fear [Unknown]
  - Nausea [Not Recovered/Not Resolved]
  - Intentional product misuse [Recovered/Resolved]
  - Eye pain [Unknown]
  - Arthralgia [Recovered/Resolved]
  - Scapula fracture [Unknown]
  - Bone disorder [Unknown]
  - Vein disorder [Unknown]
  - Back disorder [Recovering/Resolving]
  - Discomfort [Unknown]
  - Tremor [Unknown]
  - Pain [Not Recovered/Not Resolved]
  - Adverse event [Not Recovered/Not Resolved]
  - Injection site haemorrhage [Unknown]
  - Injection site bruising [Unknown]
  - Eye disorder [Not Recovered/Not Resolved]
  - Speech disorder [Unknown]
  - Dysphemia [Unknown]
  - Pain in extremity [Recovered/Resolved]
  - Anxiety [Unknown]
  - Intentional product misuse [Recovered/Resolved]
  - Movement disorder [Unknown]
  - Abnormal sensation in eye [Unknown]
  - Abdominal discomfort [Unknown]

NARRATIVE: CASE EVENT DATE: 2011
